FAERS Safety Report 15210285 (Version 14)
Quarter: 2019Q2

REPORT INFORMATION
  Report Type: Report from Study
  Country: US (occurrence: US)
  Receive Date: 20180727
  Receipt Date: 20190607
  Transmission Date: 20190711
  Serious: Yes (Life-Threatening, Hospitalization, Other)
  Sender: FDA-Public Use
  Company Number: PHHY2018US056965

PATIENT
  Age: 64 Year
  Sex: Female

DRUGS (6)
  1. VITAMIN D3 [Concomitant]
     Active Substance: CHOLECALCIFEROL
     Indication: PRODUCT USED FOR UNKNOWN INDICATION
     Route: 065
  2. RITALIN [Suspect]
     Active Substance: METHYLPHENIDATE HYDROCHLORIDE
     Indication: PRODUCT USED FOR UNKNOWN INDICATION
     Dosage: UNK
     Route: 065
  3. HUMIRA [Suspect]
     Active Substance: ADALIMUMAB
     Indication: COLITIS ULCERATIVE
     Dosage: 1 DF, UNK (40 MG,1 IN 2 WK)
     Route: 058
     Dates: start: 20161009, end: 201707
  4. HUMIRA [Suspect]
     Active Substance: ADALIMUMAB
     Dosage: 1 DF, UNK (40 MG,1 IN 2 WK)
     Route: 058
     Dates: start: 20190323
  5. PREDNISONE. [Suspect]
     Active Substance: PREDNISONE
     Indication: PYODERMA GANGRENOSUM
  6. PREDNISONE. [Suspect]
     Active Substance: PREDNISONE
     Indication: COLITIS ULCERATIVE
     Dosage: 1 DF, QD
     Route: 065
     Dates: end: 201705

REACTIONS (30)
  - Suicidal ideation [Recovered/Resolved]
  - Crying [Not Recovered/Not Resolved]
  - Joint stiffness [Unknown]
  - Head titubation [Recovered/Resolved]
  - Nasopharyngitis [Not Recovered/Not Resolved]
  - Headache [Not Recovered/Not Resolved]
  - Arthralgia [Not Recovered/Not Resolved]
  - Scar [Unknown]
  - Depression [Unknown]
  - Confusional state [Unknown]
  - Nausea [Unknown]
  - Drug ineffective [Unknown]
  - Suicidal ideation [Recovered/Resolved]
  - Musculoskeletal pain [Not Recovered/Not Resolved]
  - Throat irritation [Unknown]
  - Pain in extremity [Not Recovered/Not Resolved]
  - Dyspepsia [Recovered/Resolved]
  - Tremor [Unknown]
  - Wound secretion [Recovering/Resolving]
  - Blood potassium decreased [Unknown]
  - Dyspepsia [Recovered/Resolved]
  - Peripheral swelling [Recovering/Resolving]
  - Throat irritation [Unknown]
  - Wound [Recovering/Resolving]
  - Head titubation [Not Recovered/Not Resolved]
  - Dyspepsia [Unknown]
  - Suicidal ideation [Unknown]
  - Colitis ulcerative [Recovering/Resolving]
  - Decreased appetite [Unknown]
  - Incorrect dose administered [Unknown]

NARRATIVE: CASE EVENT DATE: 2015
